FAERS Safety Report 7187928-7 (Version None)
Quarter: 2010Q4

REPORT INFORMATION
  Report Type: 
  Country: None (occurrence: None)
  Receive Date: 20101222
  Receipt Date: 20100706
  Transmission Date: 20110411
  Serious: No
  Sender: FDA-Public Use
  Company Number: US-AMGEN-KDL422562

PATIENT

DRUGS (16)
  1. ENBREL [Suspect]
     Indication: PRODUCT USED FOR UNKNOWN INDICATION
     Dosage: 50 MG, QWK
     Route: 058
  2. CONJUGATED ESTROGEN [Concomitant]
     Dosage: .3 MG, UNK
  3. METHOTREXATE [Concomitant]
     Dosage: 2.5 MG, UNK
  4. PREDNISONE [Concomitant]
     Dosage: 1 MG, UNK
  5. TRAMADOL HYDROCHLORIDE [Concomitant]
     Dosage: 50 MG, UNK
  6. TOPROL-XL [Concomitant]
     Dosage: 25 MG, UNK
  7. CLONIDINE [Concomitant]
     Dosage: .1 MG, UNK
  8. AMITRIPTYLINE HCL [Concomitant]
     Dosage: 25 MG, UNK
  9. HYDROCODONE BITARTRATE [Concomitant]
     Dosage: UNK UNK, UNK
  10. LANSOPRAZOLE [Concomitant]
     Dosage: 30 MG, UNK
  11. SULFASALAZINE [Concomitant]
     Dosage: 500 MG, UNK
  12. ASPIRIN [Concomitant]
     Dosage: 81 MG, UNK
  13. LOVAZA [Concomitant]
     Dosage: 340 MG, UNK
  14. ACETAMINOPHEN [Concomitant]
     Dosage: 325 MG, UNK
  15. FOLIC ACID [Concomitant]
     Dosage: 5 MG, UNK
  16. DEXTROPROPOXYPHENE NAPSILATE W/ ACETAMINOPHEN [Concomitant]
     Dosage: UNK UNK, UNK

REACTIONS (1)
  - NAUSEA [None]
